FAERS Safety Report 10615033 (Version 1)
Quarter: 2014Q4

REPORT INFORMATION
  Report Type: Report from Study
  Country: US (occurrence: US)
  Receive Date: 20141201
  Receipt Date: 20141201
  Transmission Date: 20150529
  Serious: Yes (Other)
  Sender: FDA-Public Use
  Company Number: PHEH2014US023497

PATIENT
  Sex: Male

DRUGS (1)
  1. SANDIMMUNE NEORAL [Suspect]
     Active Substance: CYCLOSPORINE
     Indication: COMPLICATIONS OF TRANSPLANTED KIDNEY
     Dosage: 450 MG, QD
     Route: 048
     Dates: start: 2013

REACTIONS (6)
  - Hypertension [Unknown]
  - Weight increased [Unknown]
  - Hyperlipidaemia [Unknown]
  - Gout [Unknown]
  - Obesity [Unknown]
  - Fatigue [Unknown]
